FAERS Safety Report 24379154 (Version 1)
Quarter: 2024Q3

REPORT INFORMATION
  Report Type: Spontaneous
  Country: US (occurrence: US)
  Receive Date: 20240930
  Receipt Date: 20240930
  Transmission Date: 20241016
  Serious: Yes (Life-Threatening, Other)
  Sender: PFIZER
  Company Number: US-PFIZER INC-202400263079

PATIENT
  Age: 59 Year
  Sex: Male

DRUGS (5)
  1. AZITHROMYCIN [Suspect]
     Active Substance: AZITHROMYCIN
     Indication: SARS-CoV-2 test positive
     Dosage: UNK
  2. DOXYCYCLINE HYCLATE [Suspect]
     Active Substance: DOXYCYCLINE HYCLATE
     Indication: SARS-CoV-2 test positive
     Dosage: UNK
  3. PIPERACILLIN SODIUM\TAZOBACTAM SODIUM [Suspect]
     Active Substance: PIPERACILLIN SODIUM\TAZOBACTAM SODIUM
     Indication: SARS-CoV-2 test positive
     Dosage: UNK
  4. FLUCONAZOLE [Suspect]
     Active Substance: FLUCONAZOLE
     Indication: Candida infection
     Dosage: UNK
  5. CEPHALEXIN [Suspect]
     Active Substance: CEPHALEXIN
     Indication: SARS-CoV-2 test positive
     Dosage: UNK

REACTIONS (3)
  - Drug ineffective [Unknown]
  - Drug ineffective for unapproved indication [Unknown]
  - Off label use [Unknown]
